FAERS Safety Report 25658848 (Version 2)
Quarter: 2025Q3

REPORT INFORMATION
  Report Type: Spontaneous
  Country: US (occurrence: US)
  Receive Date: 20250808
  Receipt Date: 20250827
  Transmission Date: 20251021
  Serious: No
  Sender: SANOFI AVENTIS
  Company Number: US-SA-2025SA232374

PATIENT
  Age: 5 Year
  Sex: Male
  Weight: 22.676 kg

DRUGS (6)
  1. FABRAZYME [Suspect]
     Active Substance: AGALSIDASE BETA
     Indication: Fabry^s disease
     Dosage: 20 MG, QOW
     Route: 042
     Dates: start: 20231001, end: 20250730
  2. FAMOTIDINE [Concomitant]
     Active Substance: FAMOTIDINE
  3. LIDOCAINE\PRILOCAINE [Concomitant]
     Active Substance: LIDOCAINE\PRILOCAINE
  4. BACTERIOSTATIC WATER [Concomitant]
     Active Substance: WATER
  5. METHYLPREDNISOLONE [Concomitant]
     Active Substance: METHYLPREDNISOLONE
  6. SALINE [Concomitant]
     Active Substance: SODIUM CHLORIDE

REACTIONS (5)
  - Aggression [Recovered/Resolved]
  - Drug intolerance [Recovered/Resolved]
  - Skin laceration [Unknown]
  - Chills [Recovered/Resolved]
  - Headache [Recovered/Resolved]

NARRATIVE: CASE EVENT DATE: 20231001
